FAERS Safety Report 14186947 (Version 1)
Quarter: 2017Q4

REPORT INFORMATION
  Report Type: Spontaneous
  Country: CA (occurrence: CA)
  Receive Date: 20171114
  Receipt Date: 20171114
  Transmission Date: 20180321
  Serious: Yes (Other)
  Sender: FDA-Public Use
  Company Number: CA-MYLANLABS-2017M1070372

PATIENT
  Sex: Female

DRUGS (1)
  1. MYLAN-AZATHIOPRINE [Suspect]
     Active Substance: AZATHIOPRINE
     Indication: SARCOIDOSIS
     Dosage: UNK

REACTIONS (2)
  - Treatment failure [Unknown]
  - No adverse event [Unknown]
